FAERS Safety Report 5059354-8 (Version None)
Quarter: 2006Q3

REPORT INFORMATION
  Report Type: 
  Country: None (occurrence: None)
  Receive Date: 20060718
  Receipt Date: 20060705
  Transmission Date: 20061208
  Serious: Yes (Death, Life-Threatening, Hospitalization)
  Sender: FDA-Public Use
  Company Number: 2006079793

PATIENT
  Age: 54 Year
  Sex: Male
  Weight: 90.5 kg

DRUGS (16)
  1. SU-011, 248 (SUNITINIB MALATE) [Suspect]
     Indication: METASTATIC RENAL CELL CARCINOMA
     Dosage: 50 MG (50 MG, 1 IN 1 D) ORAL
     Route: 048
     Dates: start: 20060331, end: 20060606
  2. RANEZIDE (BEVANTOLOL HYDROCHLORIDE, HYDROCHLOROTHIAZIDE) [Concomitant]
  3. METOPROLOL TARTRATE [Concomitant]
  4. RANITIDINE [Concomitant]
  5. NEPHROTRANS (SODIUM BICARBONATE) [Concomitant]
  6. ACTRAPID INSULIN NOVO (INSULIN) [Concomitant]
  7. DICLAC (DICLOFENAC SODIUM) [Concomitant]
  8. RED BLOOD CELLS [Concomitant]
  9. GLUCOBAY [Concomitant]
  10. OMEPRAZOLE [Concomitant]
  11. PROTAPHAN (INSULIN ISOPHANE, HUMAN BIOSYNTHETIC) [Concomitant]
  12. CLAFORAN [Concomitant]
  13. CIPROFLOXACIN HCL [Concomitant]
  14. RELIV (PARACETAMOL) [Concomitant]
  15. LASIX [Concomitant]
  16. NSA (ALBUMIN NORMAL HUMAN SERUM) [Concomitant]

REACTIONS (5)
  - ANAEMIA [None]
  - HEPATOCELLULAR DAMAGE [None]
  - HYPERGLYCAEMIA [None]
  - HYPERKALAEMIA [None]
  - NEOPLASM PROGRESSION [None]
